FAERS Safety Report 12898395 (Version 21)
Quarter: 2017Q3

REPORT INFORMATION
  Report Type: Spontaneous
  Country: KR (occurrence: KR)
  Receive Date: 20161031
  Receipt Date: 20170825
  Transmission Date: 20171127
  Serious: Yes (Other)
  Sender: FDA-Public Use
  Company Number: KR-009507513-1610KOR011547

PATIENT
  Age: 73 Year
  Sex: Female
  Weight: 77.3 kg

DRUGS (51)
  1. EMEND (FOSAPREPITANT DIMEGLUMINE) [Suspect]
     Active Substance: FOSAPREPITANT DIMEGLUMINE
     Dosage: 150 MG, ONCE
     Route: 042
     Dates: start: 20161220, end: 20161220
  2. EMEND (FOSAPREPITANT DIMEGLUMINE) [Suspect]
     Active Substance: FOSAPREPITANT DIMEGLUMINE
     Dosage: 150 MG, ONCE
     Route: 042
     Dates: start: 20170116, end: 20170116
  3. MABTHERA [Concomitant]
     Active Substance: RITUXIMAB
     Dosage: 667 MG, ONCE (CYCLE 5)
     Route: 042
     Dates: start: 20170116, end: 20170116
  4. VINCRISTINE SULFATE. [Concomitant]
     Active Substance: VINCRISTINE SULFATE
     Dosage: 1.7 MG, ONCE (STRENGTH: 1MG/ML / 1ML, CYCLE 3)
     Route: 042
     Dates: start: 20161129, end: 20161129
  5. KANARB [Concomitant]
     Indication: HYPERTENSION
     Dosage: 60 MG, QD
     Route: 048
  6. CARDIOXANE [Concomitant]
     Active Substance: DEXRAZOXANE HYDROCHLORIDE
     Dosage: 600 MG, ONCE
     Route: 042
     Dates: start: 20161129, end: 20161129
  7. MUCOMYST [Concomitant]
     Active Substance: ACETYLCYSTEINE
     Indication: PRODUCTIVE COUGH
     Dosage: 800 MG, QID,(FORMULATION: SOLUTION, STRENGTH: 800MG/4ML)
     Route: 055
     Dates: start: 20161014, end: 20161020
  8. MABTHERA [Concomitant]
     Active Substance: RITUXIMAB
     Indication: DIFFUSE LARGE B-CELL LYMPHOMA
     Dosage: 656 MG, ONCE; CYCLE 1
     Route: 042
     Dates: start: 20161018, end: 20161018
  9. ADRIAMYCIN [Concomitant]
     Active Substance: DOXORUBICIN HYDROCHLORIDE
     Dosage: 61 MG, ONCE (CYCLE 2)
     Route: 042
     Dates: start: 20161108, end: 20161108
  10. ALOXI [Concomitant]
     Active Substance: PALONOSETRON HYDROCHLORIDE
     Dosage: 0.25 MG, ONCE
     Route: 042
     Dates: start: 20170206, end: 20170206
  11. EMEND (FOSAPREPITANT DIMEGLUMINE) [Suspect]
     Active Substance: FOSAPREPITANT DIMEGLUMINE
     Dosage: 150 MG, ONCE
     Route: 042
     Dates: start: 20161129, end: 20161129
  12. MABTHERA [Concomitant]
     Active Substance: RITUXIMAB
     Dosage: 641 MG, ONCE (CYCLE 6)
     Route: 042
     Dates: start: 20170206, end: 20170206
  13. ADRIAMYCIN [Concomitant]
     Active Substance: DOXORUBICIN HYDROCHLORIDE
     Dosage: 60 MG, ONCE (CYCLE 3)
     Route: 042
     Dates: start: 20161129, end: 20161129
  14. ADRIAMYCIN [Concomitant]
     Active Substance: DOXORUBICIN HYDROCHLORIDE
     Dosage: 62 MG, ONCE (CYCLE 5)
     Route: 042
     Dates: start: 20170116, end: 20170116
  15. FORXIGA [Concomitant]
     Active Substance: DAPAGLIFLOZIN
     Indication: DIABETES MELLITUS
     Dosage: 10 MG, QD
     Route: 048
  16. MABTHERA [Concomitant]
     Active Substance: RITUXIMAB
     Dosage: 656 MG, ONCE (CYCLE 2)
     Route: 042
     Dates: start: 20161108, end: 20161108
  17. MABTHERA [Concomitant]
     Active Substance: RITUXIMAB
     Dosage: 656 MG, ONCE (CYCLE 4)
     Route: 042
     Dates: start: 20161220, end: 20161220
  18. ENDOXAN [Concomitant]
     Active Substance: CYCLOPHOSPHAMIDE
     Dosage: 913 MG, ONCE (CYCLE 4)
     Route: 042
     Dates: start: 20161220, end: 20161220
  19. ENDOXAN [Concomitant]
     Active Substance: CYCLOPHOSPHAMIDE
     Dosage: 898 MG, ONCE (CYCLE 6)
     Route: 042
     Dates: start: 20170206, end: 20170206
  20. ALOXI [Concomitant]
     Active Substance: PALONOSETRON HYDROCHLORIDE
     Dosage: 0.25 MG, ONCE
     Route: 042
     Dates: start: 20161108, end: 20161108
  21. CARDIOXANE [Concomitant]
     Active Substance: DEXRAZOXANE HYDROCHLORIDE
     Dosage: 600 MG, ONCE
     Route: 042
     Dates: start: 20161220, end: 20161220
  22. ENDOXAN [Concomitant]
     Active Substance: CYCLOPHOSPHAMIDE
     Indication: DIFFUSE LARGE B-CELL LYMPHOMA
     Dosage: 918.7 MG ONCE; CYCLE 1
     Route: 042
     Dates: start: 20161018, end: 20161018
  23. ALOXI [Concomitant]
     Active Substance: PALONOSETRON HYDROCHLORIDE
     Indication: PROPHYLAXIS OF NAUSEA AND VOMITING
     Dosage: 0.25 MG, ONCE
     Route: 042
     Dates: start: 20161018, end: 20161018
  24. TARGIN [Concomitant]
     Active Substance: NALOXONE HYDROCHLORIDE\OXYCODONE HYDROCHLORIDE
     Indication: MYALGIA
     Dosage: 1 TABLET, BID
     Route: 048
     Dates: start: 20161017, end: 20161219
  25. EMEND (FOSAPREPITANT DIMEGLUMINE) [Suspect]
     Active Substance: FOSAPREPITANT DIMEGLUMINE
     Indication: PROPHYLAXIS OF NAUSEA AND VOMITING
     Dosage: 150 MG, ONCE
     Route: 042
     Dates: start: 20161018, end: 20161018
  26. EMEND (FOSAPREPITANT DIMEGLUMINE) [Suspect]
     Active Substance: FOSAPREPITANT DIMEGLUMINE
     Dosage: 150 MG, ONCE
     Route: 042
     Dates: start: 20161108, end: 20161108
  27. ENDOXAN [Concomitant]
     Active Substance: CYCLOPHOSPHAMIDE
     Dosage: 918.7 MG ONCE; CYCLE 2
     Route: 042
     Dates: start: 20161108, end: 20161108
  28. ENDOXAN [Concomitant]
     Active Substance: CYCLOPHOSPHAMIDE
     Dosage: 934 MG, ONCE (CYCLE 5)
     Route: 042
     Dates: start: 20170116, end: 20170116
  29. ADRIAMYCIN [Concomitant]
     Active Substance: DOXORUBICIN HYDROCHLORIDE
     Dosage: 60 MG, ONCE (CYCLE 4)
     Route: 042
     Dates: start: 20161220, end: 20161220
  30. VINCRISTINE SULFATE. [Concomitant]
     Active Substance: VINCRISTINE SULFATE
     Dosage: 1.67 MG, ONCE (STRENGTH: 1MG/ML / 1ML, CYCLE 6)
     Route: 042
     Dates: start: 20170206, end: 20170206
  31. ALOXI [Concomitant]
     Active Substance: PALONOSETRON HYDROCHLORIDE
     Dosage: 0.25 MG, ONCE
     Route: 042
     Dates: start: 20170116, end: 20170116
  32. CARDIOXANE [Concomitant]
     Active Substance: DEXRAZOXANE HYDROCHLORIDE
     Indication: PROPHYLAXIS
     Dosage: 610 MG, ONCE
     Route: 042
     Dates: start: 20161018, end: 20161018
  33. MABTHERA [Concomitant]
     Active Substance: RITUXIMAB
     Dosage: 565 MG, ONCE (CYCLE 3)
     Route: 042
     Dates: start: 20161129, end: 20161129
  34. ENDOXAN [Concomitant]
     Active Substance: CYCLOPHOSPHAMIDE
     Dosage: 913 MG, ONCE (CYCLE 3)
     Route: 042
     Dates: start: 20161129, end: 20161129
  35. ADRIAMYCIN [Concomitant]
     Active Substance: DOXORUBICIN HYDROCHLORIDE
     Indication: DIFFUSE LARGE B-CELL LYMPHOMA
     Dosage: 61 MG, ONCE; CYCLE 1
     Route: 042
     Dates: start: 20161018, end: 20161018
  36. ADRIAMYCIN [Concomitant]
     Active Substance: DOXORUBICIN HYDROCHLORIDE
     Dosage: 60 MG, ONCE (CYCLE 6)
     Route: 042
     Dates: start: 20170206, end: 20170206
  37. VINCRISTINE SULFATE. [Concomitant]
     Active Substance: VINCRISTINE SULFATE
     Indication: DIFFUSE LARGE B-CELL LYMPHOMA
     Dosage: 1.7 MG, ONCE; CYCLE 1(STRENGTH:1MG/ML / 1ML)
     Route: 042
     Dates: start: 20161018, end: 20161018
  38. VINCRISTINE SULFATE. [Concomitant]
     Active Substance: VINCRISTINE SULFATE
     Dosage: 1.7 MG, ONCE (STRENGTH: 1MG/ML / 1ML, CYCLE 2)
     Route: 042
     Dates: start: 20161108, end: 20161108
  39. VINCRISTINE SULFATE. [Concomitant]
     Active Substance: VINCRISTINE SULFATE
     Dosage: 1.7 MG, ONCE (STRENGTH: 1MG/ML / 1ML, CYCLE 4)
     Route: 042
     Dates: start: 20161220, end: 20161220
  40. ALOXI [Concomitant]
     Active Substance: PALONOSETRON HYDROCHLORIDE
     Dosage: 0.25 MG, ONCE
     Route: 042
     Dates: start: 20161129, end: 20161129
  41. DIABEX [Concomitant]
     Active Substance: METFORMIN HYDROCHLORIDE
     Indication: DIABETES MELLITUS
     Dosage: 500 MG, QD
     Route: 048
  42. CARDIOXANE [Concomitant]
     Active Substance: DEXRAZOXANE HYDROCHLORIDE
     Dosage: 610 MG, ONCE
     Route: 042
     Dates: start: 20061108, end: 20061108
  43. CARDIOXANE [Concomitant]
     Active Substance: DEXRAZOXANE HYDROCHLORIDE
     Dosage: 620 MG, ONCE
     Route: 042
     Dates: start: 20170116, end: 20170116
  44. MUTERAN [Concomitant]
     Active Substance: ACETYLCYSTEINE
     Indication: PRODUCTIVE COUGH
     Dosage: 200 MG, TID
     Route: 048
     Dates: start: 20161006
  45. LEGALON [Concomitant]
     Active Substance: MILK THISTLE
     Indication: LIVER FUNCTION TEST ABNORMAL
     Dosage: 140 MG, TID
     Route: 048
     Dates: start: 20161011, end: 20161027
  46. EMEND (FOSAPREPITANT DIMEGLUMINE) [Suspect]
     Active Substance: FOSAPREPITANT DIMEGLUMINE
     Dosage: 150 MG, ONCE
     Route: 042
     Dates: start: 20170206, end: 20170206
  47. VINCRISTINE SULFATE. [Concomitant]
     Active Substance: VINCRISTINE SULFATE
     Dosage: 1.7 MG, ONCE (STRENGTH: 1MG/ML / 1ML, CYCLE 5|)
     Route: 042
     Dates: start: 20170116, end: 20170116
  48. ALOXI [Concomitant]
     Active Substance: PALONOSETRON HYDROCHLORIDE
     Dosage: 0.25 MG, ONCE
     Route: 042
     Dates: start: 20161220, end: 20161220
  49. AMARYL [Concomitant]
     Active Substance: GLIMEPIRIDE
     Indication: DIABETES MELLITUS
     Dosage: 1 MG, QD
     Route: 048
  50. CARDIOXANE [Concomitant]
     Active Substance: DEXRAZOXANE HYDROCHLORIDE
     Dosage: 600 MG, ONCE
     Route: 042
     Dates: start: 20170206, end: 20170206
  51. RIBOFLAVIN (+) THIAMINE (+) URSODIOL [Concomitant]
     Indication: LIVER FUNCTION TEST ABNORMAL
     Dosage: 1 TABLET, TID
     Route: 048
     Dates: start: 20161011, end: 20161027

REACTIONS (16)
  - Neutrophil count decreased [Recovered/Resolved]
  - Neutrophil count decreased [Recovered/Resolved]
  - Musculoskeletal pain [Recovering/Resolving]
  - Neutrophil count decreased [Recovered/Resolved]
  - Decreased appetite [Recovered/Resolved]
  - Hyperkalaemia [Recovered/Resolved]
  - Neutrophil count decreased [Recovered/Resolved]
  - Cough [Recovering/Resolving]
  - Back pain [Recovering/Resolving]
  - Dyspepsia [Recovered/Resolved]
  - Constipation [Recovered/Resolved]
  - Hyperkalaemia [Recovered/Resolved]
  - Neutrophil count decreased [Recovered/Resolved]
  - Infusion related reaction [Recovered/Resolved]
  - Constipation [Recovered/Resolved]
  - Nausea [Recovered/Resolved]

NARRATIVE: CASE EVENT DATE: 20161018
